FAERS Safety Report 5620291-9 (Version None)
Quarter: 2008Q1

REPORT INFORMATION
  Report Type: 
  Country: None (occurrence: None)
  Receive Date: 20080208
  Receipt Date: 20080208
  Transmission Date: 20080703
  Serious: Yes (Other)
  Sender: FDA-Public Use
  Company Number: A0708218A

PATIENT
  Age: 28 Year
  Sex: Female
  Weight: 90.9 kg

DRUGS (1)
  1. ALLI [Suspect]
     Indication: WEIGHT LOSS DIET
     Route: 048
     Dates: start: 20080124, end: 20080205

REACTIONS (3)
  - ABDOMINAL PAIN UPPER [None]
  - ANAL HAEMORRHAGE [None]
  - RECTAL HAEMORRHAGE [None]
